FAERS Safety Report 10142463 (Version 1)
Quarter: 2014Q2

REPORT INFORMATION
  Report Type: Spontaneous
  Country: US (occurrence: US)
  Receive Date: 20140430
  Receipt Date: 20140430
  Transmission Date: 20141212
  Serious: Yes (Hospitalization)
  Sender: FDA-Public Use
  Company Number: US-BIOGENIDEC-2014BI038020

PATIENT
  Sex: Male
  Weight: 74 kg

DRUGS (6)
  1. TECFIDERA [Suspect]
     Indication: MULTIPLE SCLEROSIS
     Route: 048
  2. AMPYRA [Concomitant]
     Indication: PRODUCT USED FOR UNKNOWN INDICATION
  3. BUSPIRONE [Concomitant]
     Route: 048
  4. GABAPENTIN [Concomitant]
     Route: 048
  5. ULTRAM [Concomitant]
     Route: 048
  6. VALIUM [Concomitant]
     Route: 048

REACTIONS (7)
  - Fall [Recovered/Resolved]
  - Malaise [Unknown]
  - Pruritus [Recovered/Resolved]
  - Anxiety [Unknown]
  - Multiple sclerosis relapse [Unknown]
  - Stress [Unknown]
  - Generalised anxiety disorder [Unknown]
